FAERS Safety Report 5677277-8 (Version None)
Quarter: 2008Q1

REPORT INFORMATION
  Report Type: 
  Country: None (occurrence: None)
  Receive Date: 20080320
  Receipt Date: 20080320
  Transmission Date: 20080703
  Serious: Yes (Other)
  Sender: FDA-Public Use
  Company Number: None

PATIENT
  Age: 48 Year
  Sex: Female

DRUGS (2)
  1. ISONIAZID [Suspect]
     Indication: TUBERCULOSIS
     Dosage: ONE TABLET DAILY PO
     Route: 048
     Dates: start: 20070928, end: 20080131
  2. RIFAMPIN [Suspect]
     Indication: TUBERCULOSIS
     Dosage: TWO TABLETS DAILY PO
     Route: 048
     Dates: start: 20080131, end: 20080221

REACTIONS (1)
  - VISION BLURRED [None]
